FAERS Safety Report 7628712-7 (Version None)
Quarter: 2011Q3

REPORT INFORMATION
  Report Type: 
  Country: None (occurrence: None)
  Receive Date: 20110715
  Receipt Date: 20110630
  Transmission Date: 20111222
  Serious: Yes (Death)
  Sender: FDA-Public Use
  Company Number: TCI2009A02362

PATIENT
  Age: 52 Year
  Sex: Male

DRUGS (6)
  1. TANATRIL (IMIDAPRIL HYDROCHLORIDE) [Concomitant]
  2. ACTOS [Suspect]
     Indication: TYPE 2 DIABETES MELLITUS
     Dosage: 15 MG (15 MG, 1 D), PER ORAL
     Route: 048
     Dates: start: 20090106, end: 20090611
  3. BASEN (VOGLIBOSE) [Concomitant]
  4. BLOPRESS (CANDESARTAN CILEXETIL) [Concomitant]
  5. AMLODIPINE BESYLATE [Concomitant]
  6. AMARYL [Concomitant]

REACTIONS (1)
  - ROAD TRAFFIC ACCIDENT [None]
